FAERS Safety Report 13914851 (Version 1)
Quarter: 2017Q3

REPORT INFORMATION
  Report Type: Spontaneous
  Country: US (occurrence: US)
  Receive Date: 20170828
  Receipt Date: 20170828
  Transmission Date: 20171127
  Serious: Yes (Disabling, Other)
  Sender: FDA-Public Use
  Company Number: None

PATIENT
  Age: 42 Year
  Sex: Female
  Weight: 67.5 kg

DRUGS (1)
  1. DEPO-MEDROL [Suspect]
     Active Substance: METHYLPREDNISOLONE ACETATE
     Indication: PRODUCT USED FOR UNKNOWN INDICATION
     Route: 030
     Dates: start: 20170321, end: 20170321

REACTIONS (15)
  - Muscle atrophy [None]
  - Erythema [None]
  - Amenorrhoea [None]
  - Weight increased [None]
  - Arthralgia [None]
  - Vomiting [None]
  - Axillary nerve injury [None]
  - Incorrect route of drug administration [None]
  - Dyspnoea [None]
  - Hypertrophic scar [None]
  - Musculoskeletal pain [None]
  - Visual impairment [None]
  - Feeling hot [None]
  - Headache [None]
  - Nausea [None]

NARRATIVE: CASE EVENT DATE: 20170321
